FAERS Safety Report 21476605 (Version 1)
Quarter: 2022Q4

REPORT INFORMATION
  Report Type: Spontaneous
  Country: IT (occurrence: IT)
  Receive Date: 20221019
  Receipt Date: 20221019
  Transmission Date: 20230113
  Serious: Yes (Other)
  Sender: FDA-Public Use
  Company Number: IT-ROCHE-3177145

PATIENT
  Age: 76 Year
  Sex: Female
  Weight: 69 kg

DRUGS (13)
  1. BENDAMUSTINE HYDROCHLORIDE [Suspect]
     Active Substance: BENDAMUSTINE HYDROCHLORIDE
     Indication: Follicular lymphoma
     Dosage: (1ST LINE SYSTEMIC TREATMENT (BENDAMUSTIN (90MG/MQ)- MABTHERA (375 MG/MQ))
     Route: 042
     Dates: start: 20140528, end: 20161129
  2. VINCRISTINE [Suspect]
     Active Substance: VINCRISTINE
     Indication: Follicular lymphoma
     Dosage: 2ND LINE SYSTEMIC TREATMENT, R-COMP)
     Route: 065
     Dates: start: 20170209, end: 20170613
  3. PREDNISONE [Suspect]
     Active Substance: PREDNISONE
     Indication: Follicular lymphoma
     Dosage: 2ND LINE SYSTEMIC TREATMENT, R-COMP)
     Route: 065
     Dates: start: 20170209, end: 20170613
  4. LENALIDOMIDE [Suspect]
     Active Substance: LENALIDOMIDE
     Indication: Follicular lymphoma
     Dosage: .(4TH LINE SYSTEMIC TREATMENT, RITUXIMAB (BIOSIMILAR)/LENALIDOMIDE
     Route: 065
     Dates: start: 20190617, end: 20201207
  5. RITUXIMAB [Suspect]
     Active Substance: RITUXIMAB
     Indication: Follicular lymphoma
     Dosage: 4TH LINE SYSTEMIC TREATMENT, RITUXIMAB (BIOSIMILAR)/LENALIDOMIDE
     Route: 065
     Dates: start: 20190617, end: 20201207
  6. CYCLOPHOSPHAMIDE [Suspect]
     Active Substance: CYCLOPHOSPHAMIDE
     Indication: Follicular lymphoma
     Dosage: 2ND LINE SYSTEMIC TREATMENT, R-COMP)
     Route: 065
     Dates: start: 20170209, end: 20170613
  7. MABTHERA [Suspect]
     Active Substance: RITUXIMAB
     Indication: Follicular lymphoma
     Dosage: 1ST LINE SYSTEMIC TREATMENT (BENDAMUSTIN (90MG/MQ)- MABTHERA (375 MG/MQ))
     Route: 065
     Dates: start: 20140505, end: 20161129
  8. MABTHERA [Suspect]
     Active Substance: RITUXIMAB
     Dosage: (2ND LINE SYSTEMIC TREATMENT, R-COMP (MABTHERA))
     Route: 065
     Dates: start: 20170209, end: 20170613
  9. DOXORUBICIN [Suspect]
     Active Substance: DOXORUBICIN
     Indication: Follicular lymphoma
     Dosage: .(2ND LINE SYSTEMIC TREATMENT, R-COMP)
     Route: 065
     Dates: start: 20170209, end: 20170613
  10. ZYDELIG [Suspect]
     Active Substance: IDELALISIB
     Indication: Follicular lymphoma
     Dosage: 3RD LINE SYSTEMIC TREATMENT, ZYDELIG-IDELALISIB)
     Route: 065
     Dates: start: 20180808, end: 20190121
  11. DELAPRIL HYDROCHLORIDE\INDAPAMIDE [Concomitant]
     Active Substance: DELAPRIL HYDROCHLORIDE\INDAPAMIDE
     Indication: Product used for unknown indication
     Dosage: (1/2 CP)
     Route: 065
  12. ALLOPURINOL [Concomitant]
     Active Substance: ALLOPURINOL
     Indication: Product used for unknown indication
     Dosage: (300 MG CP)
     Route: 065
  13. SIMVASTATIN [Concomitant]
     Active Substance: SIMVASTATIN
     Indication: Product used for unknown indication
     Dosage: (1/2 CP)
     Route: 065

REACTIONS (9)
  - Pulmonary hypertension [Unknown]
  - Tricuspid valve incompetence [Unknown]
  - Degenerative aortic valve disease [Unknown]
  - Dyslipidaemia [Unknown]
  - Hypertension [Unknown]
  - Pulmonary arterial pressure abnormal [Unknown]
  - Breath sounds abnormal [Unknown]
  - Product use issue [Unknown]
  - Off label use [Unknown]
